FAERS Safety Report 8867382 (Version 1)
Quarter: 2012Q4

REPORT INFORMATION
  Report Type: 
  Country: US (occurrence: US)
  Receive Date: 20121025
  Receipt Date: 20121025
  Transmission Date: 20130627
  Serious: No
  Sender: FDA-Public Use
  Company Number: US-AMGEN-USASP2012016308

PATIENT
  Age: 63 Year
  Sex: Female

DRUGS (7)
  1. ENBREL [Suspect]
     Indication: PRODUCT USED FOR UNKNOWN INDICATION
     Dosage: 50 mg, qwk
     Route: 058
  2. METFORMIN [Concomitant]
     Dosage: 500 mg, UNK
  3. IBUPROFEN [Concomitant]
  4. CENTRUM SILVER                     /01292501/ [Concomitant]
  5. GINSENG                            /01384001/ [Concomitant]
     Dosage: 100 mg, UNK
  6. GINKO BILOBA [Concomitant]
     Dosage: 120 mg, UNK
  7. ASPIRIN [Concomitant]
     Dosage: 81 mg, UNK

REACTIONS (1)
  - Bronchitis [Recovered/Resolved]
